FAERS Safety Report 14746032 (Version 1)
Quarter: 2018Q2

REPORT INFORMATION
  Report Type: Spontaneous
  Country: FR (occurrence: FR)
  Receive Date: 20180411
  Receipt Date: 20180411
  Transmission Date: 20180711
  Serious: Yes (Other)
  Sender: FDA-Public Use
  Company Number: FR-TEVA-2018-FR-879465

PATIENT
  Age: 47 Year
  Sex: Female

DRUGS (3)
  1. CYCLOSPORINE. [Suspect]
     Active Substance: CYCLOSPORINE
     Indication: IMMUNOSUPPRESSANT DRUG THERAPY
     Route: 065
  2. MYCOPHENOLATE MOFETIL. [Suspect]
     Active Substance: MYCOPHENOLATE MOFETIL
     Indication: IMMUNOSUPPRESSANT DRUG THERAPY
     Dosage: DISCONTINUED DUE TO HAEMATOLOGIC TOXICITY AND RESTARTED AT AN UNKNOWN DOSE
     Route: 065
  3. VALGANCICLOVIR. [Suspect]
     Active Substance: VALGANCICLOVIR
     Indication: ANTIVIRAL PROPHYLAXIS
     Dosage: DISCONTINUED DUE TO HAEMATOLOGIC TOXICITY AND RESTARTED AT AN UNKNOWN DOSE
     Route: 065

REACTIONS (6)
  - Pneumonia [Recovered/Resolved]
  - Neutropenia [Recovering/Resolving]
  - Leukopenia [Recovering/Resolving]
  - Cytomegalovirus infection [Recovered/Resolved]
  - Pseudomonas infection [Recovered/Resolved]
  - Septic shock [Recovering/Resolving]
